FAERS Safety Report 25032253 (Version 2)
Quarter: 2025Q1

REPORT INFORMATION
  Report Type: Spontaneous
  Country: US (occurrence: US)
  Receive Date: 20250303
  Receipt Date: 20250324
  Transmission Date: 20250409
  Serious: Yes (Other)
  Sender: BAYER HEALTHCARE PHARMACEUTICALS INC.
  Company Number: US-BAYER-2025A026567

PATIENT
  Sex: Male

DRUGS (2)
  1. NUBEQA [Suspect]
     Active Substance: DAROLUTAMIDE
  2. NUBEQA [Suspect]
     Active Substance: DAROLUTAMIDE
     Dates: start: 20250312

REACTIONS (6)
  - Polyneuropathy [None]
  - Gait inability [None]
  - Dysstasia [None]
  - Liver function test increased [None]
  - Muscular weakness [None]
  - Hepatic steatosis [None]

NARRATIVE: CASE EVENT DATE: 20241223
